FAERS Safety Report 16381067 (Version 3)
Quarter: 2022Q4

REPORT INFORMATION
  Report Type: Spontaneous
  Country: DE (occurrence: DE)
  Receive Date: 20190602
  Receipt Date: 20221012
  Transmission Date: 20230113
  Serious: Yes (Other)
  Sender: FDA-Public Use
  Company Number: PHHY2019DE120628

PATIENT
  Age: 30 Year
  Sex: Male
  Weight: 76 kg

DRUGS (28)
  1. RIBAVIRIN [Suspect]
     Active Substance: RIBAVIRIN
     Indication: Chronic hepatitis C
     Dosage: 1000 MG, QD (CUMULATIVE DOSE TO FIRST REACTION: 103473.69 MG 1000 MG, QD)
     Route: 048
     Dates: start: 20120524, end: 20120802
  2. RIBAVIRIN [Suspect]
     Active Substance: RIBAVIRIN
     Dosage: 800 MG, QD CUMULATIVE DOSE TO FIRST REACTION: 103473.69 MG 800 MG, QD)
     Route: 048
     Dates: start: 20120803, end: 20130425
  3. ATAZANAVIR SULFATE [Suspect]
     Active Substance: ATAZANAVIR SULFATE
     Indication: HIV infection
     Dosage: 300 MG, QD (1DF=200 UNIT NOS CUMULATIVE DOSE TO FIRST REACTION 262500 MG, 300MG,QD)
     Route: 048
     Dates: start: 20100101
  4. ATAZANAVIR SULFATE [Suspect]
     Active Substance: ATAZANAVIR SULFATE
     Dosage: 1000 MG, QD
     Route: 048
     Dates: start: 20120524, end: 20120802
  5. ATAZANAVIR SULFATE [Suspect]
     Active Substance: ATAZANAVIR SULFATE
     Dosage: 800 MG, QD
     Route: 048
     Dates: start: 20120803, end: 20130425
  6. EMTRICITABINE [Suspect]
     Active Substance: EMTRICITABINE
     Indication: HIV infection
     Dosage: 200 MG, QD (CUMULATIVE DOSE TO FIRST REACTION: 174926.88 MG 200 MG, QD)
     Route: 048
     Dates: start: 20100101, end: 20160720
  7. EMTRICITABINE [Suspect]
     Active Substance: EMTRICITABINE
     Dosage: 200 MG, QD (CUMULATIVE DOSE TO FIRST REACTION: 174926.88 MG200 MG, QD))
     Route: 048
     Dates: start: 20160720
  8. NORVIR [Suspect]
     Active Substance: RITONAVIR
     Indication: HIV infection
     Dosage: 100 MG, QD (CUMULATIVE DOSE TO FIRST REACTION: 98658.76 MG 100 MG, QD)
     Route: 048
     Dates: start: 20100101
  9. NORVIR [Suspect]
     Active Substance: RITONAVIR
     Dosage: 20 MG, QD
     Route: 048
     Dates: start: 2013
  10. NORVIR [Suspect]
     Active Substance: RITONAVIR
     Dosage: 100 MG, QD
     Route: 048
     Dates: start: 2013, end: 20160720
  11. PEGASYS [Suspect]
     Active Substance: PEGINTERFERON ALFA-2A
     Indication: Chronic hepatitis C
     Dosage: 180 UG, QW
     Route: 058
     Dates: start: 20120524, end: 20130425
  12. PEGASYS [Suspect]
     Active Substance: PEGINTERFERON ALFA-2A
     Dosage: 180 UG, QW
     Route: 058
     Dates: start: 20130425
  13. REYATAZ [Suspect]
     Active Substance: ATAZANAVIR SULFATE
     Indication: HIV infection
     Dosage: 300 MG, QD (CUMULATIVE DOSE TO FIRST REACTION: 262500 MG 300 MG, QD)
     Route: 048
     Dates: start: 20100101, end: 20160720
  14. REYATAZ [Suspect]
     Active Substance: ATAZANAVIR SULFATE
     Dosage: 300 MG, QD (CUMULATIVE DOSE TO FIRST REACTION: 262500 MG 300 MG, QD)
     Route: 048
     Dates: start: 20160720
  15. TRUVADA [Suspect]
     Active Substance: EMTRICITABINE\TENOFOVIR DISOPROXIL FUMARATE
     Indication: HIV infection
     Dosage: 200 MG, QD
     Route: 048
     Dates: start: 20100101, end: 20160720
  16. TRUVADA [Suspect]
     Active Substance: EMTRICITABINE\TENOFOVIR DISOPROXIL FUMARATE
     Dosage: 200 MG, QD (200MG/245MG)
     Route: 048
     Dates: start: 20160720
  17. TELAPREVIR [Suspect]
     Active Substance: TELAPREVIR
     Indication: Chronic hepatitis C
     Dosage: 2250 MG, QD
     Route: 048
     Dates: start: 20120524, end: 20120816
  18. COPEGUS [Suspect]
     Active Substance: RIBAVIRIN
     Indication: Chronic hepatitis C
     Dosage: 1000 MG, QD (CUMULATIVE DOSE TO FIRST REACTION: 103473.69 MG1000 MG, QD)
     Route: 048
     Dates: start: 20120524, end: 20120802
  19. COPEGUS [Suspect]
     Active Substance: RIBAVIRIN
     Dosage: 800 MG, QD (CUMULATIVE DOSE TO FIRST REACTION: 103473.69 MG800 MG, QD)
     Route: 048
     Dates: start: 20120803, end: 20130425
  20. ACETYLCYSTEINE [Concomitant]
     Active Substance: ACETYLCYSTEINE
     Indication: Product used for unknown indication
     Dosage: 600 MG, UNK
     Route: 065
  21. ACETYLCYSTEINE [Concomitant]
     Active Substance: ACETYLCYSTEINE
     Dosage: 60 MG, UNK
     Route: 065
     Dates: start: 20130314
  22. CITALOPRAM [Concomitant]
     Active Substance: CITALOPRAM HYDROBROMIDE
     Indication: Drug dependence
     Dosage: 20 MG (DOSAGE FORM: UNSPECIFIED)
     Route: 065
     Dates: start: 20120621
  23. CITALOPRAM [Concomitant]
     Active Substance: CITALOPRAM HYDROBROMIDE
     Dosage: 40 MG, UNK
     Route: 065
     Dates: start: 20121220, end: 20130601
  24. AZITHROMYCIN [Concomitant]
     Active Substance: AZITHROMYCIN
     Indication: Product used for unknown indication
     Dosage: 500 MG, QD
     Route: 065
     Dates: start: 20130603, end: 20130605
  25. SUBUTEX [Concomitant]
     Active Substance: BUPRENORPHINE HYDROCHLORIDE
     Indication: Product used for unknown indication
     Dosage: 4 MG (DOSAGE FORM: UNSPECIFIED)
     Route: 065
  26. BETAGALEN [Concomitant]
     Indication: Hepatitis C
     Dosage: UNK
     Route: 065
     Dates: start: 20120605
  27. METAMIZOLE SODIUM [Concomitant]
     Active Substance: METAMIZOLE SODIUM
     Indication: Product used for unknown indication
     Dosage: UNK
     Route: 065
  28. METAMIZOLE SODIUM [Concomitant]
     Active Substance: METAMIZOLE SODIUM
     Dosage: UNK
     Route: 048
     Dates: start: 20121221

REACTIONS (22)
  - Restlessness [Recovered/Resolved]
  - Oral herpes [Recovered/Resolved]
  - Impaired healing [Recovered/Resolved]
  - Drug dependence [Not Recovered/Not Resolved]
  - Skin irritation [Not Recovered/Not Resolved]
  - Headache [Recovered/Resolved]
  - Nausea [Not Recovered/Not Resolved]
  - Fatigue [Recovered/Resolved]
  - Influenza like illness [Recovered/Resolved]
  - Anaemia [Not Recovered/Not Resolved]
  - Depressed mood [Not Recovered/Not Resolved]
  - Taste disorder [Not Recovered/Not Resolved]
  - Pruritus [Not Recovered/Not Resolved]
  - Withdrawal syndrome [Not Recovered/Not Resolved]
  - Laboratory test abnormal [Unknown]
  - Alanine aminotransferase increased [Not Recovered/Not Resolved]
  - Nasopharyngitis [Recovered/Resolved]
  - Dry skin [Not Recovered/Not Resolved]
  - Vertigo [Recovered/Resolved]
  - Dizziness [Recovered/Resolved]
  - Sinusitis [Recovered/Resolved]
  - Incorrect dose administered [Unknown]

NARRATIVE: CASE EVENT DATE: 20120524
